FAERS Safety Report 25823811 (Version 2)
Quarter: 2025Q4

REPORT INFORMATION
  Report Type: Report from Study
  Country: US (occurrence: US)
  Receive Date: 20250919
  Receipt Date: 20251016
  Transmission Date: 20260117
  Serious: Yes (Hospitalization)
  Sender: IPSEN BIOPHARMACEUTICALS, INC.
  Company Number: US-IPSEN Group, Research and Development-2025-22896

PATIENT
  Age: 47 Year
  Sex: Female

DRUGS (3)
  1. SOMATULINE DEPOT [Suspect]
     Active Substance: LANREOTIDE ACETATE
     Indication: Acromegaly
     Dosage: DEEP SC
     Route: 058
     Dates: start: 2003
  2. LEVOTHYROXINE [Concomitant]
     Active Substance: LEVOTHYROXINE
  3. METFORMIN [Concomitant]
     Active Substance: METFORMIN HYDROCHLORIDE

REACTIONS (9)
  - Vertigo [Recovering/Resolving]
  - Hypertension [Unknown]
  - Fatigue [Unknown]
  - Off label use [Unknown]
  - Back pain [Unknown]
  - Neck pain [Unknown]
  - Intervertebral disc protrusion [Unknown]
  - Fibromyalgia [Unknown]
  - Migraine [Unknown]

NARRATIVE: CASE EVENT DATE: 20250701
